FAERS Safety Report 9777949 (Version 2)
Quarter: 2014Q1

REPORT INFORMATION
  Report Type: Spontaneous
  Country: US (occurrence: US)
  Receive Date: 20131223
  Receipt Date: 20140221
  Transmission Date: 20141002
  Serious: Yes (Other)
  Sender: FDA-Public Use
  Company Number: US-BRISTOL-MYERS SQUIBB COMPANY-19915958

PATIENT
  Sex: Male

DRUGS (7)
  1. BYDUREON [Suspect]
     Indication: TYPE 2 DIABETES MELLITUS
  2. LANTUS [Concomitant]
  3. APIDRA [Concomitant]
  4. RAMIPRIL [Concomitant]
  5. METFORMIN [Concomitant]
  6. CRESTOR [Concomitant]
  7. LEXAPRO [Concomitant]

REACTIONS (5)
  - Lipase increased [Unknown]
  - Amylase increased [Unknown]
  - Abdominal pain [Unknown]
  - Nausea [Unknown]
  - Vomiting [Unknown]
